FAERS Safety Report 13064234 (Version 1)
Quarter: 2016Q4

REPORT INFORMATION
  Report Type: Spontaneous
  Country: US (occurrence: US)
  Receive Date: 20161223
  Receipt Date: 20161223
  Transmission Date: 20170207
  Serious: No
  Sender: FDA-Public Use
  Company Number: None

PATIENT
  Age: 71 Year
  Sex: Male
  Weight: 153 kg

DRUGS (1)
  1. DILTIAZEM HCL 60 MG TAB MYLA [Suspect]
     Active Substance: DILTIAZEM HYDROCHLORIDE
     Indication: HYPERTENSION
     Dosage: ?          QUANTITY:270 TABLET(S);?
     Route: 048
     Dates: start: 20121215, end: 20161119

REACTIONS (2)
  - Product substitution issue [None]
  - Flatulence [None]

NARRATIVE: CASE EVENT DATE: 20161122
